FAERS Safety Report 4815482-0 (Version None)
Quarter: 2005Q4

REPORT INFORMATION
  Report Type: 
  Country: None (occurrence: None)
  Receive Date: 20051028
  Receipt Date: 20051028
  Transmission Date: 20060501
  Serious: Yes (Hospitalization)
  Sender: FDA-Public Use
  Company Number: None

PATIENT
  Age: 62 Year
  Sex: Male
  Weight: 74.1 kg

DRUGS (1)
  1. TRAVAPROST                   0.004% [Suspect]
     Indication: GLAUCOMA
     Dosage: ONE DROP IN EACH EYE QHS OPHTHALMIC
     Route: 047
     Dates: start: 20050607, end: 20050914

REACTIONS (1)
  - BRADYCARDIA [None]
